FAERS Safety Report 20454848 (Version 1)
Quarter: 2022Q1

REPORT INFORMATION
  Report Type: Spontaneous
  Country: CN (occurrence: CN)
  Receive Date: 20220210
  Receipt Date: 20220210
  Transmission Date: 20220423
  Serious: Yes (Other)
  Sender: FDA-Public Use
  Company Number: CN-PFIZER INC-202200167957

PATIENT
  Age: 4 Year
  Sex: Male
  Weight: 14 kg

DRUGS (6)
  1. AZITHROMYCIN [Suspect]
     Active Substance: AZITHROMYCIN
     Indication: Bronchitis
     Dosage: 130 MG, 1X/DAY
     Route: 048
     Dates: start: 20220114, end: 20220115
  2. BECLOMETHASONE DIPROPIONATE [Suspect]
     Active Substance: BECLOMETHASONE DIPROPIONATE
     Indication: Bronchitis
     Dosage: 0.8 MG, 1X/DAY
     Dates: start: 20220114, end: 20220114
  3. IPRATROPIUM BROMIDE [Concomitant]
     Active Substance: IPRATROPIUM BROMIDE
     Indication: Vehicle solution use
     Dosage: 0.25 MG, 1X/DAY
     Dates: start: 20220114, end: 20220114
  4. IPRATROPIUM BROMIDE [Concomitant]
     Active Substance: IPRATROPIUM BROMIDE
     Indication: Bronchitis
  5. TERBUTALINE SULFATE [Concomitant]
     Active Substance: TERBUTALINE SULFATE
     Indication: Vehicle solution use
     Dosage: 2.5 MG, 1X/DAY
     Dates: start: 20220114, end: 20220114
  6. TERBUTALINE SULFATE [Concomitant]
     Active Substance: TERBUTALINE SULFATE
     Indication: Bronchitis

REACTIONS (5)
  - Rash erythematous [Recovering/Resolving]
  - Rash maculo-papular [Recovering/Resolving]
  - Pruritus [Recovering/Resolving]
  - Erythema [Recovering/Resolving]
  - Skin exfoliation [Recovering/Resolving]

NARRATIVE: CASE EVENT DATE: 20220114
